FAERS Safety Report 17800629 (Version 1)
Quarter: 2020Q2

REPORT INFORMATION
  Report Type: Spontaneous
  Country: FR (occurrence: FR)
  Receive Date: 20200518
  Receipt Date: 20200518
  Transmission Date: 20200714
  Serious: Yes (Death, Hospitalization, Other)
  Sender: FDA-Public Use
  Company Number: FR-APOPHARMA INC-2020AP010715

PATIENT
  Age: 81 Year
  Sex: Male

DRUGS (1)
  1. FERRIPROX [Suspect]
     Active Substance: DEFERIPRONE
     Indication: AUTOIMMUNE HAEMOLYTIC ANAEMIA
     Dosage: 4500 MG, QD
     Route: 048
     Dates: end: 20200505

REACTIONS (2)
  - Death [Fatal]
  - Hospitalisation [Unknown]

NARRATIVE: CASE EVENT DATE: 20200327
